FAERS Safety Report 12234358 (Version 2)
Quarter: 2016Q2

REPORT INFORMATION
  Report Type: Spontaneous
  Country: AT (occurrence: AT)
  Receive Date: 20160404
  Receipt Date: 20160506
  Transmission Date: 20160815
  Serious: Yes (Hospitalization, Other)
  Sender: FDA-Public Use
  Company Number: AT-PFIZER INC-2016185937

PATIENT
  Age: 65 Year
  Sex: Female
  Weight: 80 kg

DRUGS (2)
  1. SANTIZOR [Suspect]
     Active Substance: TOLTERODINE TARTRATE
     Indication: URGE INCONTINENCE
     Dosage: 4 MG, 1X/DAY
     Dates: start: 20160304, end: 20160324
  2. CYSTISTAT [Concomitant]
     Indication: URGE INCONTINENCE
     Dosage: UNK, WEEKLY
     Route: 043
     Dates: start: 20160304, end: 20160407

REACTIONS (2)
  - Sudden hearing loss [Recovered/Resolved]
  - Hypersensitivity [Unknown]

NARRATIVE: CASE EVENT DATE: 201603
